FAERS Safety Report 5406566-7 (Version None)
Quarter: 2007Q3

REPORT INFORMATION
  Report Type: 
  Country: None (occurrence: None)
  Receive Date: 20070806
  Receipt Date: 20070730
  Transmission Date: 20080115
  Serious: Yes (Other)
  Sender: FDA-Public Use
  Company Number: US-PFIZER INC-2007063091

PATIENT
  Age: 17 Year

DRUGS (2)
  1. ZYRTEC [Suspect]
  2. RISPERDAL [Suspect]

REACTIONS (4)
  - EYELID PTOSIS [None]
  - HEADACHE [None]
  - MUSCLE SPASMS [None]
  - PARAESTHESIA [None]
